FAERS Safety Report 6842765-5 (Version None)
Quarter: 2010Q3

REPORT INFORMATION
  Report Type: 
  Country: None (occurrence: None)
  Receive Date: 20100714
  Receipt Date: 20071119
  Transmission Date: 20110219
  Serious: No
  Sender: FDA-Public Use
  Company Number: US-PFIZER INC-2007065653

PATIENT
  Sex: Male
  Weight: 72.7 kg

DRUGS (7)
  1. CHANTIX [Suspect]
     Indication: SMOKING CESSATION THERAPY
     Dates: start: 20070701
  2. ANTABUSE [Concomitant]
  3. MIRTAZAPINE [Concomitant]
  4. TOPAMAX [Concomitant]
  5. TRAZODONE HYDROCHLORIDE [Concomitant]
  6. PROZAC [Concomitant]
  7. LIPITOR [Concomitant]

REACTIONS (6)
  - APATHY [None]
  - DEPRESSION [None]
  - FATIGUE [None]
  - MEDICATION ERROR [None]
  - MENTAL DISORDER [None]
  - SOMNOLENCE [None]
